FAERS Safety Report 12534948 (Version 1)
Quarter: 2016Q3

REPORT INFORMATION
  Report Type: Report from Study
  Country: US (occurrence: US)
  Receive Date: 20160707
  Receipt Date: 20160707
  Transmission Date: 20161109
  Serious: No
  Sender: FDA-Public Use
  Company Number: US-009507513-2006-147845-NL

PATIENT
  Sex: Female

DRUGS (6)
  1. FOLLISTIM [Suspect]
     Active Substance: FOLLITROPIN
     Indication: ASSISTED FERTILISATION
     Dosage: UNK DF, UNK
     Route: 030
  2. PROGESTERONE. [Concomitant]
     Active Substance: PROGESTERONE
     Indication: ASSISTED FERTILISATION
     Dosage: 50 MG, QD
     Route: 030
  3. LEUPROLIDE ACETATE. [Concomitant]
     Active Substance: LEUPROLIDE ACETATE
     Indication: ASSISTED FERTILISATION
     Dosage: UNK DF, UNK
  4. PREGNYL [Suspect]
     Active Substance: CHORIOGONADOTROPIN ALFA
     Indication: OVULATION INDUCTION
     Dosage: 10000 IU, UNK
  5. ORGAFOL [Suspect]
     Active Substance: UROFOLLITROPIN
     Indication: ASSISTED FERTILISATION
     Dosage: UNK DF, UNK
     Route: 030
  6. HUMEGON [Suspect]
     Active Substance: MENOTROPINS
     Indication: ASSISTED FERTILISATION
     Dosage: UNK DF, UNK
     Route: 030

REACTIONS (1)
  - Ovarian hyperstimulation syndrome [Unknown]
